FAERS Safety Report 12127017 (Version 3)
Quarter: 2016Q4

REPORT INFORMATION
  Report Type: Spontaneous
  Country: US (occurrence: US)
  Receive Date: 20160229
  Receipt Date: 20161223
  Transmission Date: 20170206
  Serious: Yes (Death, Other)
  Sender: FDA-Public Use
  Company Number: US-009507513-1602USA012385

PATIENT
  Sex: Male

DRUGS (3)
  1. KEYTRUDA [Suspect]
     Active Substance: PEMBROLIZUMAB
     Indication: OESOPHAGEAL CARCINOMA
     Dosage: FIRST INFUSION, 120MG EVERY 21 DAYS
     Route: 042
     Dates: start: 20151207, end: 20151207
  2. KEYTRUDA [Suspect]
     Active Substance: PEMBROLIZUMAB
     Dosage: THIRD INFUSION, 120MG EVERY 21 DAYS
     Route: 042
     Dates: start: 20160119, end: 20160119
  3. KEYTRUDA [Suspect]
     Active Substance: PEMBROLIZUMAB
     Dosage: SECOND INFUSION, 120MG EVERY 21 DAYS
     Route: 042
     Dates: start: 20151228, end: 20151228

REACTIONS (2)
  - Product use issue [Unknown]
  - Malignant neoplasm progression [Fatal]
